FAERS Safety Report 9246654 (Version 1)
Quarter: 2013Q2

REPORT INFORMATION
  Report Type: Spontaneous
  Country: US (occurrence: US)
  Receive Date: 20130422
  Receipt Date: 20130422
  Transmission Date: 20140414
  Serious: No
  Sender: FDA-Public Use
  Company Number: US-ABBOTT-12P-163-0940602-00

PATIENT
  Sex: Female

DRUGS (1)
  1. LUPRON DEPOT-PED 30 MG (3 MONTH) [Suspect]
     Indication: PRECOCIOUS PUBERTY

REACTIONS (3)
  - Injection site joint movement impairment [Unknown]
  - Arthralgia [Unknown]
  - Injection site nodule [Unknown]
